FAERS Safety Report 19705676 (Version 1)
Quarter: 2021Q3

REPORT INFORMATION
  Report Type: Report from Study
  Country: US (occurrence: US)
  Receive Date: 20210817
  Receipt Date: 20210817
  Transmission Date: 20211014
  Serious: Yes (Hospitalization, Other)
  Sender: FDA-Public Use
  Company Number: US-AUROBINDO-AUR-APL-2013-04561

PATIENT
  Sex: Female

DRUGS (1)
  1. NEVIRAPINE TABLETS USP 200MG [Suspect]
     Active Substance: NEVIRAPINE
     Indication: PRODUCT USED FOR UNKNOWN INDICATION
     Dosage: UNK
     Route: 065

REACTIONS (5)
  - Skin toxicity [Recovered/Resolved]
  - Blister [Unknown]
  - Conjunctival hyperaemia [Unknown]
  - Rash papular [Recovered/Resolved]
  - Mouth ulceration [Unknown]
